FAERS Safety Report 18813633 (Version 1)
Quarter: 2021Q1

REPORT INFORMATION
  Report Type: Report from Study
  Country: None (occurrence: CL)
  Receive Date: 20210201
  Receipt Date: 20210201
  Transmission Date: 20210419
  Serious: Yes (Life-Threatening, Other)
  Sender: FDA-Public Use
  Company Number: CL-ABBVIE-21K-034-3753369-00

PATIENT
  Age: 61 Year
  Sex: Female

DRUGS (1)
  1. HUMIRA [Suspect]
     Active Substance: ADALIMUMAB
     Indication: RHEUMATOID ARTHRITIS
     Route: 058
     Dates: start: 20190517

REACTIONS (3)
  - Knee operation [Recovering/Resolving]
  - Peripheral artery thrombosis [Recovered/Resolved]
  - Pulmonary thrombosis [Recovered/Resolved]

NARRATIVE: CASE EVENT DATE: 202012
